FAERS Safety Report 25620233 (Version 2)
Quarter: 2025Q4

REPORT INFORMATION
  Report Type: Spontaneous
  Country: EU (occurrence: EU)
  Receive Date: 20250730
  Receipt Date: 20251029
  Transmission Date: 20260119
  Serious: Yes (Hospitalization)
  Sender: MERCK SHARP & DOHME LLC
  Company Number: EU-DCGMA-25205535

PATIENT
  Age: 58 Year
  Sex: Female
  Weight: 76 kg

DRUGS (3)
  1. KEYTRUDA [Suspect]
     Active Substance: PEMBROLIZUMAB
     Indication: Neoplasm malignant
     Dosage: 200 MG
     Route: 042
     Dates: start: 20240402, end: 202409
  2. CARBOPLATIN\PACLITAXEL [Concomitant]
     Active Substance: CARBOPLATIN\PACLITAXEL
     Dosage: FREQUENCY: 12 TOTAL
     Route: 065
     Dates: start: 20240311, end: 20240902
  3. CARBOPLATIN\PACLITAXEL [Concomitant]
     Active Substance: CARBOPLATIN\PACLITAXEL
     Dosage: FREQUENCY: 12 TOTAL
     Route: 065
     Dates: start: 20240311, end: 20240902

REACTIONS (1)
  - Stiff person syndrome [Not Recovered/Not Resolved]

NARRATIVE: CASE EVENT DATE: 20240601
